FAERS Safety Report 22398494 (Version 7)
Quarter: 2025Q2

REPORT INFORMATION
  Report Type: Spontaneous
  Country: SE (occurrence: SE)
  Receive Date: 20230602
  Receipt Date: 20250506
  Transmission Date: 20250717
  Serious: Yes (Death, Hospitalization, Other)
  Sender: GE HEALTHCARE
  Company Number: SE-GE HEALTHCARE-2023CSU004217

PATIENT
  Age: 78 Year
  Sex: Female

DRUGS (3)
  1. VIZAMYL [Suspect]
     Active Substance: FLUTEMETAMOL F-18
     Indication: Diagnostic procedure
     Dosage: 185 MBQ, SINGLE
     Route: 042
     Dates: start: 20230526, end: 20230526
  2. VIZAMYL [Suspect]
     Active Substance: FLUTEMETAMOL F-18
     Indication: Dementia
  3. SODIUM CHLORIDE [Concomitant]
     Active Substance: SODIUM CHLORIDE
     Indication: Catheter management
     Route: 042
     Dates: start: 20230526, end: 20230526

REACTIONS (10)
  - Cardiac arrest [Fatal]
  - Loss of consciousness [Fatal]
  - Chest pain [Fatal]
  - Urinary incontinence [Fatal]
  - Brain stem haemorrhage [Fatal]
  - Dyspnoea [Fatal]
  - Ocular hyperaemia [Not Recovered/Not Resolved]
  - Flushing [Not Recovered/Not Resolved]
  - Nausea [Not Recovered/Not Resolved]
  - Incorrect product administration duration [Recovered/Resolved]

NARRATIVE: CASE EVENT DATE: 20230526
